FAERS Safety Report 5519756-X (Version None)
Quarter: 2007Q4

REPORT INFORMATION
  Report Type: 
  Country: None (occurrence: None)
  Receive Date: 20071116
  Receipt Date: 20070807
  Transmission Date: 20080405
  Serious: No
  Sender: FDA-Public Use
  Company Number: A0668658A

PATIENT
  Age: 60 Year
  Sex: Female

DRUGS (11)
  1. COREG CR [Suspect]
     Indication: HYPERTENSION
     Dosage: 80MG PER DAY
     Route: 048
     Dates: start: 20070318
  2. HYZAAR [Concomitant]
  3. LOVASTATIN [Concomitant]
  4. ZYRTEC-D [Concomitant]
  5. NASACORT [Concomitant]
  6. ALBUTEROL [Concomitant]
  7. WARFARIN SODIUM [Concomitant]
  8. PAROXETINE [Concomitant]
  9. DARVOCET [Concomitant]
  10. CELEBREX [Concomitant]
  11. AMBIEN [Concomitant]

REACTIONS (2)
  - HEART RATE IRREGULAR [None]
  - WHEEZING [None]
